FAERS Safety Report 13735044 (Version 1)
Quarter: 2017Q3

REPORT INFORMATION
  Report Type: Spontaneous
  Country: JP (occurrence: JP)
  Receive Date: 20170710
  Receipt Date: 20170710
  Transmission Date: 20171127
  Serious: Yes (Hospitalization)
  Sender: FDA-Public Use
  Company Number: JP-CIPLA LTD.-2017JP11415

PATIENT

DRUGS (11)
  1. CILNIDIPINE [Suspect]
     Active Substance: CILNIDIPINE
     Indication: BLOOD PRESSURE SYSTOLIC INCREASED
     Dosage: UNK
     Route: 048
  2. DILTIAZEM. [Suspect]
     Active Substance: DILTIAZEM
     Indication: TACHYCARDIA
     Dosage: UNK
     Route: 042
  3. CANDESARTAN. [Concomitant]
     Active Substance: CANDESARTAN
     Indication: HYPERTENSION
     Dosage: 2 MG, DAILY
     Route: 065
  4. HYDROCORTISONE. [Suspect]
     Active Substance: HYDROCORTISONE
     Indication: TRI-IODOTHYRONINE INCREASED
     Dosage: 300 MG DAILY FOR 3 CONSECUTIVE DAYS
     Route: 042
  5. DOXAZOSIN [Suspect]
     Active Substance: DOXAZOSIN\DOXAZOSIN MESYLATE
     Dosage: UNK, INCREASED THE DOSE
     Route: 065
  6. CARVEDILOL. [Suspect]
     Active Substance: CARVEDILOL
     Indication: PHAEOCHROMOCYTOMA
     Dosage: UNK, SMALL DOSES
     Route: 065
  7. PROPRANOLOL [Suspect]
     Active Substance: PROPRANOLOL HYDROCHLORIDE
     Indication: TACHYCARDIA
     Dosage: UNK
     Route: 042
  8. PROPRANOLOL [Suspect]
     Active Substance: PROPRANOLOL HYDROCHLORIDE
     Indication: BLOOD PRESSURE SYSTOLIC INCREASED
  9. CARVEDILOL. [Suspect]
     Active Substance: CARVEDILOL
     Dosage: UNK, INCREASED THE DOSE
     Route: 065
  10. DILTIAZEM. [Suspect]
     Active Substance: DILTIAZEM
     Indication: BLOOD PRESSURE SYSTOLIC INCREASED
  11. DOXAZOSIN [Suspect]
     Active Substance: DOXAZOSIN\DOXAZOSIN MESYLATE
     Indication: PHAEOCHROMOCYTOMA
     Dosage: UNK, SMALL DOSES
     Route: 065

REACTIONS (1)
  - Renal failure [Recovered/Resolved]
